FAERS Safety Report 13748663 (Version 1)
Quarter: 2017Q3

REPORT INFORMATION
  Report Type: Spontaneous
  Country: US (occurrence: US)
  Receive Date: 20170713
  Receipt Date: 20170713
  Transmission Date: 20171127
  Serious: Yes (Congenital Anomaly, Other)
  Sender: FDA-Public Use
  Company Number: US-TEVA-787935ACC

PATIENT

DRUGS (1)
  1. PARAGARD T 380A [Suspect]
     Active Substance: COPPER
     Indication: CONTRACEPTION
     Dosage: PRODUCT TAKEN BY MOTHER
     Route: 064
     Dates: start: 201003, end: 201111

REACTIONS (4)
  - Premature baby [Unknown]
  - Live birth [Unknown]
  - Anencephaly [Unknown]
  - Foetal exposure during pregnancy [Unknown]
